FAERS Safety Report 9762773 (Version 1)
Quarter: 2013Q4

REPORT INFORMATION
  Report Type: Spontaneous
  Country: US (occurrence: US)
  Receive Date: 20131216
  Receipt Date: 20131216
  Transmission Date: 20140711
  Serious: No
  Sender: FDA-Public Use
  Company Number: US-PFIZER INC-2013357984

PATIENT
  Sex: Male

DRUGS (3)
  1. IBUPROFEN [Suspect]
     Dosage: UNK
  2. NAPROXEN SODIUM [Suspect]
     Dosage: UNK
  3. MELOXICAM [Suspect]
     Dosage: UNK

REACTIONS (1)
  - Drug ineffective [Unknown]
